FAERS Safety Report 14387240 (Version 2)
Quarter: 2018Q1

REPORT INFORMATION
  Report Type: Report from Study
  Country: US (occurrence: US)
  Receive Date: 20180115
  Receipt Date: 20180206
  Transmission Date: 20180509
  Serious: Yes (Death, Hospitalization)
  Sender: FDA-Public Use
  Company Number: US-ACTELION-A-US2015-128659

PATIENT
  Age: 72 Year
  Sex: Female
  Weight: 76.19 kg

DRUGS (4)
  1. OXYGEN. [Concomitant]
     Active Substance: OXYGEN
     Dosage: 4 L/MIN, UNK
  2. AMLODIPINE [Concomitant]
     Active Substance: AMLODIPINE BESYLATE
  3. TRACLEER [Suspect]
     Active Substance: BOSENTAN
     Indication: PULMONARY ARTERIAL HYPERTENSION
     Dosage: 125 MG, BID
     Route: 048
  4. REVATIO [Concomitant]
     Active Substance: SILDENAFIL CITRATE

REACTIONS (8)
  - Device connection issue [Unknown]
  - Peripheral swelling [Unknown]
  - Loss of consciousness [Unknown]
  - Chest pain [Unknown]
  - Death [Fatal]
  - Dyspnoea [Unknown]
  - Mycotic allergy [Unknown]
  - Syncope [Unknown]

NARRATIVE: CASE EVENT DATE: 20180104
